FAERS Safety Report 16498059 (Version 1)
Quarter: 2019Q2

REPORT INFORMATION
  Report Type: Spontaneous
  Country: JP (occurrence: JP)
  Receive Date: 20190628
  Receipt Date: 20190628
  Transmission Date: 20190711
  Serious: Yes (Death, Other)
  Sender: FDA-Public Use
  Company Number: GXJP2019JP001183

PATIENT
  Age: 74 Year
  Sex: Male

DRUGS (3)
  1. ETOPOSIDE. [Suspect]
     Active Substance: ETOPOSIDE
     Indication: NEUROENDOCRINE CARCINOMA
     Dosage: UNK
     Route: 041
  2. CARBOPLATIN. [Concomitant]
     Active Substance: CARBOPLATIN
     Indication: NEUROENDOCRINE CARCINOMA
     Dosage: UNK
     Route: 065
  3. PACLITAXEL. [Suspect]
     Active Substance: PACLITAXEL
     Indication: NEUROENDOCRINE CARCINOMA
     Dosage: UNK
     Route: 041

REACTIONS (5)
  - Interstitial lung disease [Unknown]
  - Concomitant disease progression [Fatal]
  - Malignant neoplasm progression [Fatal]
  - Metastases to liver [Fatal]
  - Neuroendocrine carcinoma [Fatal]
